FAERS Safety Report 7236657-X (Version None)
Quarter: 2011Q1

REPORT INFORMATION
  Report Type: 
  Country: None (occurrence: None)
  Receive Date: 20110120
  Receipt Date: 20110114
  Transmission Date: 20110831
  Serious: Yes (Other)
  Sender: FDA-Public Use
  Company Number: US-PFIZER INC-2011011809

PATIENT
  Sex: Male

DRUGS (2)
  1. LIPITOR [Suspect]
  2. COUMADIN [Suspect]
     Dosage: UNK

REACTIONS (5)
  - ARTHRALGIA [None]
  - EYE INFLAMMATION [None]
  - RETINAL HAEMORRHAGE [None]
  - SCLERAL HAEMORRHAGE [None]
  - PAIN IN EXTREMITY [None]
